FAERS Safety Report 4771993-8 (Version None)
Quarter: 2005Q3

REPORT INFORMATION
  Report Type: 
  Country: None (occurrence: None)
  Receive Date: 20050916
  Receipt Date: 20050608
  Transmission Date: 20060218
  Serious: Yes (Disabling)
  Sender: FDA-Public Use
  Company Number: AU-MERCK-0505AUS00322

PATIENT
  Age: 28 Year
  Sex: Male

DRUGS (1)
  1. PROSCAR [Suspect]
     Indication: ALOPECIA
     Route: 048
     Dates: start: 20040720, end: 20040920

REACTIONS (5)
  - DRUG ADMINISTRATION ERROR [None]
  - ERECTILE DYSFUNCTION [None]
  - ORGANIC ERECTILE DYSFUNCTION [None]
  - PROGESTERONE INCREASED [None]
  - WRONG TECHNIQUE IN DRUG USAGE PROCESS [None]
